FAERS Safety Report 15237947 (Version 2)
Quarter: 2018Q4

REPORT INFORMATION
  Report Type: Report from Study
  Country: CO (occurrence: CO)
  Receive Date: 20180803
  Receipt Date: 20181001
  Transmission Date: 20190204
  Serious: Yes (Other)
  Sender: FDA-Public Use
  Company Number: PHHY2018CO060454

PATIENT
  Sex: Female

DRUGS (1)
  1. SIGNIFOR [Suspect]
     Active Substance: PASIREOTIDE
     Indication: PITUITARY-DEPENDENT CUSHING^S SYNDROME
     Dosage: 0.6 MG, QD
     Route: 058
     Dates: start: 20150320, end: 201804

REACTIONS (3)
  - Thyroid cancer [Unknown]
  - Inappropriate schedule of product administration [Unknown]
  - Speech disorder [Unknown]
